FAERS Safety Report 17975048 (Version 2)
Quarter: 2020Q3

REPORT INFORMATION
  Report Type: Spontaneous
  Country: US (occurrence: US)
  Receive Date: 20200702
  Receipt Date: 20200831
  Transmission Date: 20201103
  Serious: No
  Sender: FDA-Public Use
  Company Number: US-TEVA-2020-US-1794662

PATIENT
  Age: 54 Year
  Sex: Female

DRUGS (2)
  1. VAGIFEM [Concomitant]
     Active Substance: ESTRADIOL
     Route: 065
  2. ESTRADIOL TEVA [Suspect]
     Active Substance: ESTRADIOL
     Indication: ATROPHIC VULVOVAGINITIS
     Route: 065
     Dates: start: 20200506, end: 20200731

REACTIONS (8)
  - Vulvovaginal dryness [Not Recovered/Not Resolved]
  - Burning sensation [None]
  - Vulvovaginal discomfort [Not Recovered/Not Resolved]
  - Product substitution issue [Unknown]
  - Product solubility abnormal [Unknown]
  - Therapeutic product effect decreased [Unknown]
  - Fungal infection [Recovered/Resolved]
  - Product use issue [Unknown]

NARRATIVE: CASE EVENT DATE: 2020
